FAERS Safety Report 5310861-X (Version None)
Quarter: 2007Q1

REPORT INFORMATION
  Report Type: 
  Country: None (occurrence: None)
  Receive Date: 20070201
  Receipt Date: 20070117
  Transmission Date: 20070707
  Serious: Yes (Hospitalization)
  Sender: FDA-Public Use
  Company Number: US-2006-010640

PATIENT
  Age: 28 Year
  Sex: Female
  Weight: 62.1 kg

DRUGS (3)
  1. MIRENA [Suspect]
     Indication: CONTRACEPTION
     Dosage: 20 UG/DAY, CONT, INTRA-UTERINE
     Route: 015
     Dates: start: 20051226, end: 20060207
  2. NESTABS (VITAMIN D NOS, MINERALS NOS, RETINOL) [Concomitant]
  3. DIFLUCAN [Concomitant]

REACTIONS (2)
  - ABDOMINAL PAIN LOWER [None]
  - UTERINE PERFORATION [None]
